FAERS Safety Report 9916028 (Version 2)
Quarter: 2014Q2

REPORT INFORMATION
  Report Type: Report from Study
  Country: US (occurrence: US)
  Receive Date: 20140221
  Receipt Date: 20140603
  Transmission Date: 20141212
  Serious: Yes (Other)
  Sender: FDA-Public Use
  Company Number: US-ROCHE-1349337

PATIENT
  Age: 59 Year
  Sex: Female

DRUGS (4)
  1. RIBAVIRIN [Suspect]
     Indication: HEPATITIS C
     Dosage: 1000-2000 MG (1000 MG IN PATIENTS WITH A BODY WEIGHT OF LESS THAN 75 KG, AND 1200 MG IN PATIENTS WIT
     Route: 048
  2. RIBAVIRIN [Suspect]
     Route: 048
  3. DACLATASVIR [Suspect]
     Indication: HEPATITIS C
     Route: 048
  4. SOFOSBUVIR [Suspect]
     Indication: HEPATITIS C
     Route: 048

REACTIONS (1)
  - Fibromyalgia [Unknown]
